FAERS Safety Report 11835150 (Version 1)
Quarter: 2015Q4

REPORT INFORMATION
  Report Type: Spontaneous
  Country: US (occurrence: US)
  Receive Date: 20151215
  Receipt Date: 20151215
  Transmission Date: 20160305
  Serious: No
  Sender: FDA-Public Use
  Company Number: US-009507513-1512USA003024

PATIENT
  Age: 18 Year
  Sex: Female
  Weight: 42.63 kg

DRUGS (1)
  1. NEXPLANON [Suspect]
     Active Substance: ETONOGESTREL
     Indication: CONTRACEPTION
     Dosage: UNK
     Route: 059

REACTIONS (5)
  - Weight decreased [Unknown]
  - Menstruation irregular [Unknown]
  - Dizziness [Unknown]
  - Headache [Unknown]
  - Dysmenorrhoea [Unknown]
